FAERS Safety Report 17121418 (Version 1)
Quarter: 2019Q4

REPORT INFORMATION
  Report Type: Spontaneous
  Country: US (occurrence: US)
  Receive Date: 20191205
  Receipt Date: 20191205
  Transmission Date: 20200122
  Serious: No
  Sender: FDA-Public Use
  Company Number: None

PATIENT

DRUGS (1)
  1. ARGATROBAN IN 0.9% SODIUM CHLORIDE INJECTION [Suspect]
     Active Substance: ARGATROBAN

REACTIONS (4)
  - Skin reaction [None]
  - Accidental exposure to product [None]
  - Product substitution issue [None]
  - Product container issue [None]

NARRATIVE: CASE EVENT DATE: 20191122
